FAERS Safety Report 18802723 (Version 1)
Quarter: 2021Q1

REPORT INFORMATION
  Report Type: Spontaneous
  Country: US (occurrence: US)
  Receive Date: 20210128
  Receipt Date: 20210128
  Transmission Date: 20210419
  Serious: No
  Sender: FDA-Public Use
  Company Number: US-PERRIGO-20US009689

PATIENT
  Age: 87 Year
  Sex: Female
  Weight: 61.22 kg

DRUGS (2)
  1. TRETINOIN 0.05% CREAM (2L4) [Suspect]
     Active Substance: TRETINOIN
     Dosage: 1 THIN LAYER, NIGHTLY
     Route: 061
     Dates: start: 20200523, end: 20200626
  2. TRETINOIN 0.05% CREAM (2L4) [Suspect]
     Active Substance: TRETINOIN
     Indication: MILIA
     Dosage: 1 THIN LAYER, NIGHTLY
     Route: 061

REACTIONS (6)
  - Application site irritation [Recovered/Resolved]
  - Accidental exposure to product [Recovered/Resolved]
  - Nasal inflammation [Not Recovered/Not Resolved]
  - Off label use [Recovered/Resolved]
  - Nasal discomfort [Recovering/Resolving]
  - Nasal crusting [Not Recovered/Not Resolved]

NARRATIVE: CASE EVENT DATE: 202006
